FAERS Safety Report 4830799-1 (Version None)
Quarter: 2005Q4

REPORT INFORMATION
  Report Type: 
  Country: None (occurrence: None)
  Receive Date: 20051117
  Receipt Date: 20051115
  Transmission Date: 20060501
  Serious: Yes (Hospitalization)
  Sender: FDA-Public Use
  Company Number: NL-MERCK-0511NLD00013

PATIENT
  Age: 71 Year
  Sex: Female

DRUGS (4)
  1. OMEPRAZOLE [Concomitant]
     Route: 048
     Dates: start: 20011119
  2. NOROXIN [Suspect]
     Indication: URINARY TRACT INFECTION
     Route: 048
     Dates: start: 20041122, end: 20041127
  3. ACETAMINOPHEN AND CODEINE PHOSPHATE [Concomitant]
     Route: 048
     Dates: start: 20031201
  4. MOMETASONE FUROATE [Concomitant]
     Route: 061

REACTIONS (2)
  - OEDEMA [None]
  - SYNCOPE [None]
